FAERS Safety Report 8977704 (Version 1)
Quarter: 2012Q4

REPORT INFORMATION
  Report Type: 
  Country: DE (occurrence: DE)
  Receive Date: 20121220
  Receipt Date: 20121220
  Transmission Date: 20130627
  Serious: Yes (Hospitalization)
  Sender: FDA-Public Use
  Company Number: DE-GENZYME-THYM-1003544

PATIENT
  Age: 63 Year
  Sex: Female
  Weight: 75 kg

DRUGS (9)
  1. THYMOGLOBULINE [Suspect]
     Indication: RENAL TRANSPLANT
     Dosage: 100 mg, qd
     Route: 042
     Dates: start: 20100107
  2. MYCOPHENOLATE MOFETIL [Suspect]
     Indication: RENAL TRANSPLANT
     Dosage: 2000 mg, qd
     Route: 048
     Dates: start: 20100105
  3. MYCOPHENOLATE MOFETIL [Suspect]
     Dosage: 500 mg, qd
     Route: 048
     Dates: start: 20100130
  4. TACROLIMUS [Suspect]
     Indication: RENAL TRANSPLANT
     Dosage: 10 mg, qd
     Route: 048
     Dates: start: 20100105
  5. PREDNISOLONE [Suspect]
     Indication: RENAL TRANSPLANT
     Dosage: 25 mg, qd
     Route: 048
     Dates: start: 20100107
  6. PANTOPRAZOLE [Concomitant]
     Indication: PRODUCT USED FOR UNKNOWN INDICATION
     Dosage: 20 mg, UNK
     Route: 065
     Dates: start: 20100113
  7. L-THYROXIN [Concomitant]
     Indication: PRODUCT USED FOR UNKNOWN INDICATION
     Dosage: 50 mg, UNK
     Route: 065
  8. COTRIM FORTE EU RHO [Concomitant]
     Indication: PRODUCT USED FOR UNKNOWN INDICATION
     Dosage: 960 mg, UNK
     Route: 065
     Dates: start: 20100108
  9. CONCOR [Concomitant]
     Indication: PRODUCT USED FOR UNKNOWN INDICATION
     Dosage: 5 mg, UNK
     Route: 065
     Dates: start: 201001

REACTIONS (3)
  - Weight decreased [Unknown]
  - Gastroenteritis [Recovered/Resolved]
  - Tremor [Unknown]
